FAERS Safety Report 6162971-5 (Version None)
Quarter: 2009Q2

REPORT INFORMATION
  Report Type: 
  Country: None (occurrence: None)
  Receive Date: 20090420
  Receipt Date: 20081215
  Transmission Date: 20091009
  Serious: Yes (Hospitalization)
  Sender: FDA-Public Use
  Company Number: 014121

PATIENT
  Age: 47 Year
  Sex: Female

DRUGS (14)
  1. PRIALT [Suspect]
     Indication: PAIN IN EXTREMITY
     Dosage: 1.325 UG, ONCE/HOUR, INTRATHECAL
     Route: 037
  2. PRIALT [Suspect]
     Indication: RADICULOPATHY
     Dosage: 1.325 UG, ONCE/HOUR, INTRATHECAL
     Route: 037
  3. SUFENTANIL CITRATE [Concomitant]
  4. BUPIVACAINE [Concomitant]
  5. BACLOFEN [Concomitant]
  6. LAXATIVES [Concomitant]
  7. COUMADIN [Concomitant]
  8. CYMBALTA [Concomitant]
  9. IMIPRAMINE [Concomitant]
  10. DITROPAN [Concomitant]
  11. NITROFURANTOIN [Concomitant]
  12. BONIVA [Concomitant]
  13. MULTIVITAMIN (VITAMIN NOS) [Concomitant]
  14. VITAMIN D [Concomitant]

REACTIONS (8)
  - CARDIAC FAILURE CONGESTIVE [None]
  - CATHETER RELATED COMPLICATION [None]
  - DEVICE MALFUNCTION [None]
  - GRANULOMA [None]
  - INTERVERTEBRAL DISCITIS [None]
  - NEURALGIA [None]
  - OSTEOMYELITIS [None]
  - PNEUMONIA [None]
